FAERS Safety Report 20918380 (Version 1)
Quarter: 2022Q2

REPORT INFORMATION
  Report Type: Spontaneous
  Country: PT (occurrence: PT)
  Receive Date: 20220606
  Receipt Date: 20220606
  Transmission Date: 20220720
  Serious: Yes (Other)
  Sender: FDA-Public Use
  Company Number: PT-INFARMED-T202203-945

PATIENT
  Age: 28 Year
  Sex: Female
  Weight: 45 kg

DRUGS (1)
  1. BUPROPION [Suspect]
     Active Substance: BUPROPION
     Indication: Depression
     Dosage: 150 MILLIGRAM, ONCE A DAY (150 E 300 MG )
     Route: 048
     Dates: start: 20210901, end: 20220324

REACTIONS (3)
  - Seizure [Recovered/Resolved]
  - Migraine [Recovered/Resolved]
  - Insomnia [Unknown]

NARRATIVE: CASE EVENT DATE: 20210901
